FAERS Safety Report 4620754-9 (Version None)
Quarter: 2005Q2

REPORT INFORMATION
  Report Type: 
  Country: None (occurrence: None)
  Receive Date: 20050321
  Receipt Date: 20041022
  Transmission Date: 20051028
  Serious: Yes (Disabling)
  Sender: FDA-Public Use
  Company Number: 2004-10-1475

PATIENT
  Sex: Male

DRUGS (2)
  1. PEG-INTRON [Suspect]
     Dosage: SUBCUTANEOUS
     Route: 058
     Dates: start: 20020201, end: 20030101
  2. REBETOL [Suspect]
     Dosage: ORAL
     Route: 048
     Dates: start: 20020201, end: 20030101

REACTIONS (8)
  - CHILLS [None]
  - DEPRESSION [None]
  - HEARING IMPAIRED [None]
  - NEUROPATHY PERIPHERAL [None]
  - NIGHT SWEATS [None]
  - OEDEMA [None]
  - PAIN [None]
  - PYREXIA [None]
